FAERS Safety Report 6005384-9 (Version None)
Quarter: 2008Q4

REPORT INFORMATION
  Report Type: 
  Country: None (occurrence: None)
  Receive Date: 20081216
  Receipt Date: 20081209
  Transmission Date: 20090506
  Serious: Yes (Other)
  Sender: FDA-Public Use
  Company Number: US-ALLERGAN-0815527US

PATIENT
  Sex: Female

DRUGS (2)
  1. BOTOX [Suspect]
     Indication: MUSCLE SPASTICITY
     Dosage: 400 UNITS, SINGLE
     Route: 030
     Dates: start: 20081112, end: 20081112
  2. TRILEPTAL [Concomitant]
     Indication: CONVULSION

REACTIONS (3)
  - ASTHENIA [None]
  - DYSPHAGIA [None]
  - DYSPHONIA [None]
